FAERS Safety Report 7650568-7 (Version None)
Quarter: 2011Q3

REPORT INFORMATION
  Report Type: 
  Country: None (occurrence: None)
  Receive Date: 20110727
  Receipt Date: 20110712
  Transmission Date: 20111222
  Serious: Yes (Hospitalization)
  Sender: FDA-Public Use
  Company Number: 2011AP001289

PATIENT
  Age: 62 Year
  Sex: Male

DRUGS (20)
  1. LISINOPRIL [Concomitant]
  2. OMEPRAZOLE [Concomitant]
  3. TRAMADOL HCL [Concomitant]
  4. LEFLUNOMIDE [Suspect]
     Indication: RHEUMATOID ARTHRITIS
     Dosage: 20 MG;QD
     Dates: end: 20110527
  5. NIFEDIPINE [Concomitant]
  6. CALCIUM CARBONATE [Concomitant]
  7. GABAPENTIN [Concomitant]
  8. WARFARIN SODIUM [Concomitant]
  9. METHOTREXATE [Suspect]
     Indication: RHEUMATOID ARTHRITIS
     Dosage: 10 MG;QD
     Dates: end: 20110527
  10. ATENOLOL [Concomitant]
  11. BEZAFIBRATE (BEZAFIBRATE) [Concomitant]
  12. COLECALCIFEROL (COLECALCIFEROL) [Concomitant]
  13. MEBEVERINE (MEBEVERINE) [Concomitant]
  14. PRAVASTATIN [Concomitant]
  15. ETANERCEPT (ETANERCEPT) [Concomitant]
  16. NITROGLYCERIN [Concomitant]
  17. ASPIRIN [Concomitant]
  18. VITAMIN D [Concomitant]
  19. FOLIC ACID [Concomitant]
  20. PREDNISOLONE [Concomitant]

REACTIONS (6)
  - PANCYTOPENIA [None]
  - NEUTROPENIC SEPSIS [None]
  - RECTAL HAEMORRHAGE [None]
  - FEBRILE NEUTROPENIA [None]
  - BONE MARROW TOXICITY [None]
  - ANAEMIA [None]
